FAERS Safety Report 9345661 (Version 1)
Quarter: 2013Q2

REPORT INFORMATION
  Report Type: Spontaneous
  Country: CA (occurrence: CA)
  Receive Date: 20130613
  Receipt Date: 20130613
  Transmission Date: 20140414
  Serious: Yes (Other)
  Sender: FDA-Public Use
  Company Number: CA-TEVA-411817USA

PATIENT
  Age: 85 Year
  Sex: Female
  Weight: 43.13 kg

DRUGS (3)
  1. CLOPIDOGREL [Suspect]
     Dosage: 75 MILLIGRAM DAILY;
     Route: 048
  2. BISOPROLOL [Concomitant]
  3. VALSARTAN [Concomitant]

REACTIONS (5)
  - Alopecia [Recovered/Resolved]
  - Onychoclasis [Recovered/Resolved]
  - Product substitution issue [Recovered/Resolved]
  - Rash pruritic [Recovered/Resolved]
  - Skin haemorrhage [Recovered/Resolved]
